FAERS Safety Report 23131108 (Version 2)
Quarter: 2023Q4

REPORT INFORMATION
  Report Type: Spontaneous
  Country: US (occurrence: US)
  Receive Date: 20231031
  Receipt Date: 20231123
  Transmission Date: 20240109
  Serious: No
  Sender: FDA-Public Use
  Company Number: US-SA-SAC20231027000354

PATIENT
  Age: 54 Year
  Sex: Female

DRUGS (7)
  1. DUPIXENT [Suspect]
     Active Substance: DUPILUMAB
     Indication: Dermatitis atopic
     Dosage: 1DF QOW
     Route: 058
     Dates: start: 20230926, end: 2023
  2. DUPIXENT [Suspect]
     Active Substance: DUPILUMAB
     Dosage: 300 MG
     Route: 058
     Dates: start: 20231024
  3. CLOBETASOL [Concomitant]
     Active Substance: CLOBETASOL
  4. GABAPENTIN [Concomitant]
     Active Substance: GABAPENTIN
  5. PREDNISOLONE [Concomitant]
     Active Substance: PREDNISOLONE
  6. OXYCODONE [Concomitant]
     Active Substance: OXYCODONE
  7. SINGULAIR [Concomitant]
     Active Substance: MONTELUKAST SODIUM

REACTIONS (6)
  - Chapped lips [Unknown]
  - Headache [Unknown]
  - Nausea [Unknown]
  - Eye irritation [Unknown]
  - Oral herpes [Unknown]
  - Arthralgia [Unknown]
